FAERS Safety Report 17588590 (Version 1)
Quarter: 2020Q1

REPORT INFORMATION
  Report Type: Spontaneous
  Country: CN (occurrence: CN)
  Receive Date: 20200327
  Receipt Date: 20200327
  Transmission Date: 20200409
  Serious: Yes (Hospitalization)
  Sender: FDA-Public Use
  Company Number: CN-BAXTER-2020BAX006581

PATIENT
  Age: 7 Year
  Sex: Female
  Weight: 28 kg

DRUGS (5)
  1. HOLOXAN [Suspect]
     Active Substance: IFOSFAMIDE
     Dosage: HOLOXAN + NS, DOSE RE-INTRODUCED
     Route: 041
     Dates: start: 202003
  2. 0.9% SODIUM CHLORIDE INJECTION [Suspect]
     Active Substance: SODIUM CHLORIDE
     Dosage: HOLOXAN + NS, DOSE RE-INTRODUCED
     Route: 041
     Dates: start: 202003
  3. METHOTREXATE. [Suspect]
     Active Substance: METHOTREXATE
     Indication: PRODUCT USED FOR UNKNOWN INDICATION
     Route: 065
  4. HOLOXAN [Suspect]
     Active Substance: IFOSFAMIDE
     Indication: OSTEOSARCOMA
     Dosage: HOLOXAN + NS
     Route: 041
     Dates: start: 20200225, end: 20200229
  5. 0.9% SODIUM CHLORIDE INJECTION [Suspect]
     Active Substance: SODIUM CHLORIDE
     Indication: MEDICATION DILUTION
     Dosage: HOLOXAN + NS
     Route: 041
     Dates: start: 20200225, end: 20200229

REACTIONS (1)
  - Bone marrow failure [Recovering/Resolving]

NARRATIVE: CASE EVENT DATE: 20200304
